FAERS Safety Report 8785308 (Version 1)
Quarter: 2012Q4

REPORT INFORMATION
  Report Type: Spontaneous
  Country: CH (occurrence: None)
  Receive Date: 20120905
  Receipt Date: 20120905
  Transmission Date: 20130627
  Serious: Yes (Other)
  Sender: FDA-Public Use
  Company Number: 20120506

PATIENT
  Age: 43 Year
  Sex: Female

DRUGS (5)
  1. VENOFER [Suspect]
     Indication: ANEMIA
     Route: 042
     Dates: start: 20120703, end: 20120705
  2. PERFALGAN (PARACETAMOL) [Concomitant]
  3. SPASFON (PHYLOROGLUCINOL) [Concomitant]
  4. PLASMA [Concomitant]
  5. PACKED RED BLOOD CELLS [Concomitant]

REACTIONS (1)
  - Injection site phlebitis [None]
